FAERS Safety Report 5028248-6 (Version None)
Quarter: 2006Q2

REPORT INFORMATION
  Report Type: 
  Country: None (occurrence: None)
  Receive Date: 20060503
  Receipt Date: 20060315
  Transmission Date: 20061013
  Serious: No
  Sender: FDA-Public Use
  Company Number: FACT0600174

PATIENT
  Age: 57 Year
  Sex: Female

DRUGS (3)
  1. FACTIVE [Suspect]
     Indication: RESPIRATORY TRACT INFECTION BACTERIAL
     Dosage: 320 MG, QD, ORAL
     Route: 048
     Dates: start: 20060314, end: 20060301
  2. DECONGESTANT [Suspect]
     Dates: start: 20060314
  3. ANTIHISTAMINES [Suspect]
     Dates: start: 20060314

REACTIONS (5)
  - DIZZINESS [None]
  - FEELING DRUNK [None]
  - HYPERHIDROSIS [None]
  - PRURITUS [None]
  - TREMOR [None]
